FAERS Safety Report 4576539-5 (Version None)
Quarter: 2005Q1

REPORT INFORMATION
  Report Type: 
  Country: None (occurrence: None)
  Receive Date: 20050119
  Receipt Date: 20040317
  Transmission Date: 20050727
  Serious: Yes (Hospitalization)
  Sender: FDA-Public Use
  Company Number: A03200400826

PATIENT
  Age: 71 Year
  Sex: Male
  Weight: 100 kg

DRUGS (11)
  1. PLAVIX [Suspect]
     Indication: PLATELET AGGREGATION INHIBITION
     Dosage: 75 MG QD - ORAL
     Route: 048
     Dates: start: 20040120, end: 20040122
  2. ANGIOMAX [Suspect]
     Indication: ANTICOAGULANT THERAPY
     Dosage: 15MG LOADING DOSE FOLLOWED BY 20MG (TOTAL DOSE: 35MG) - INTRAVENOUS
     Route: 042
     Dates: start: 20040120, end: 20040122
  3. METOPROLOL TARTRATE [Concomitant]
  4. FOSINOPRIL SODIUM [Concomitant]
  5. RABEPRAZOLE SODIUM [Concomitant]
  6. PIOGLITAZONE [Concomitant]
  7. VITAMINS NOS [Concomitant]
  8. CALCIUM GLUCONATE [Concomitant]
  9. ACETYLSALICYLIC ACID [Concomitant]
  10. EZETIMIBE [Concomitant]
  11. LOVASTATIN [Concomitant]

REACTIONS (3)
  - HAEMATOCRIT DECREASED [None]
  - HAEMOGLOBIN DECREASED [None]
  - VASCULAR PSEUDOANEURYSM [None]
